FAERS Safety Report 9980972 (Version 1)
Quarter: 2014Q1

REPORT INFORMATION
  Report Type: Spontaneous
  Country: US (occurrence: US)
  Receive Date: 20140307
  Receipt Date: 20140307
  Transmission Date: 20141002
  Serious: No
  Sender: FDA-Public Use
  Company Number: US-GLAXOSMITHKLINE-A1053131A

PATIENT
  Age: 52 Year
  Sex: Female

DRUGS (1)
  1. ROPINIROLE [Suspect]
     Indication: PARKINSON^S DISEASE
     Dosage: 9MG PER DAY
     Route: 065

REACTIONS (2)
  - Fatigue [Unknown]
  - Underdose [Unknown]
